FAERS Safety Report 4419709-9 (Version None)
Quarter: 2004Q3

REPORT INFORMATION
  Report Type: 
  Country: None (occurrence: None)
  Receive Date: 20040805
  Receipt Date: 20040805
  Transmission Date: 20050211
  Serious: Yes (Death)
  Sender: FDA-Public Use
  Company Number: None

PATIENT
  Age: 31 Year
  Sex: Male
  Weight: 133 kg

DRUGS (2)
  1. PHENERGAN HCL [Suspect]
     Indication: POST PROCEDURAL PAIN
     Dosage: 25 MG  Q3-4H  INTRAVENOUS
     Route: 042
     Dates: start: 20040623, end: 20040623
  2. DEMEROL [Suspect]
     Indication: POST PROCEDURAL PAIN
     Dosage: 75  Q3-4H  INTRAVENOUS
     Route: 042
     Dates: start: 20040623, end: 20040623

REACTIONS (3)
  - CARDIO-RESPIRATORY ARREST [None]
  - COMA [None]
  - POST PROCEDURAL COMPLICATION [None]
